FAERS Safety Report 16369559 (Version 2)
Quarter: 2019Q2

REPORT INFORMATION
  Report Type: Spontaneous
  Country: PL (occurrence: PL)
  Receive Date: 20190530
  Receipt Date: 20190612
  Transmission Date: 20190711
  Serious: Yes (Other)
  Sender: FDA-Public Use
  Company Number: PL-ROCHE-2327274

PATIENT
  Age: 59 Year
  Sex: Female

DRUGS (7)
  1. DOXORUBICIN HYDROCHLORIDE. [Suspect]
     Active Substance: DOXORUBICIN HYDROCHLORIDE
     Indication: CHRONIC LYMPHOCYTIC LEUKAEMIA
     Dosage: ON JUN/2018, SHE RECEIVED MOST RECENT DOSE OF DOXORUBICIN HYDROCHLORIDE.
     Route: 065
     Dates: start: 201803
  2. FLUDARABINE [Suspect]
     Active Substance: FLUDARABINE PHOSPHATE
     Indication: CHRONIC LYMPHOCYTIC LEUKAEMIA
     Route: 065
  3. RITUXIMAB. [Suspect]
     Active Substance: RITUXIMAB
     Indication: CHRONIC LYMPHOCYTIC LEUKAEMIA
     Dosage: ON JUN/2018, SHE RECEIVED MOST RECENT DOSE OF RITUXIMAB.
     Route: 065
     Dates: start: 201803
  4. CYCLOPHOSPHAMIDE. [Suspect]
     Active Substance: CYCLOPHOSPHAMIDE
     Indication: CHRONIC LYMPHOCYTIC LEUKAEMIA
     Dosage: IN JUN/2018, SHE RECEIVED MOST RECENT DOSE OF CYCLOPHOSPHAMIDE.
     Route: 065
     Dates: start: 201803
  5. VINCRISTINE [Suspect]
     Active Substance: VINCRISTINE
     Indication: CHRONIC LYMPHOCYTIC LEUKAEMIA
     Dosage: 3 CYCLIC?ON JUN/2018, SHE RECEIVED MOST RECENT DOSE OF VINCRISTINE.
     Route: 065
     Dates: start: 201803
  6. PREDNISOLONE. [Suspect]
     Active Substance: PREDNISOLONE
     Indication: CHRONIC LYMPHOCYTIC LEUKAEMIA
     Dosage: ON JUN/2018, SHE RECEIVED MOST RECENT DOSE OF PREDNISOLONE.
     Route: 065
     Dates: start: 201803
  7. BENDAMUSTINE [Suspect]
     Active Substance: BENDAMUSTINE
     Indication: CHRONIC LYMPHOCYTIC LEUKAEMIA
     Route: 065

REACTIONS (12)
  - Skin erosion [Unknown]
  - Pruritus [Unknown]
  - Drug resistance [Unknown]
  - Intentional product use issue [Unknown]
  - Erythema [Unknown]
  - Nodule [Unknown]
  - Leukaemia cutis [Unknown]
  - Off label use [Unknown]
  - Chronic lymphocytic leukaemia [Unknown]
  - Skin lesion [Unknown]
  - Therapy partial responder [Unknown]
  - Rash papular [Unknown]
